FAERS Safety Report 12745404 (Version 6)
Quarter: 2017Q2

REPORT INFORMATION
  Report Type: Spontaneous
  Country: US (occurrence: US)
  Receive Date: 20160915
  Receipt Date: 20170608
  Transmission Date: 20170830
  Serious: Yes (Hospitalization)
  Sender: FDA-Public Use
  Company Number: US-PFIZER INC-2016425236

PATIENT
  Age: 68 Year
  Sex: Female

DRUGS (4)
  1. IBRANCE [Suspect]
     Active Substance: PALBOCICLIB
     Dosage: 100 MG, UNK
     Dates: start: 201608
  2. IBRANCE [Suspect]
     Active Substance: PALBOCICLIB
     Dosage: 125 MG, UNK
     Dates: start: 20160904
  3. FEMARA [Suspect]
     Active Substance: LETROZOLE
     Dosage: UNK
  4. ASPIRIN. [Suspect]
     Active Substance: ASPIRIN
     Dosage: UNK

REACTIONS (9)
  - Nausea [Unknown]
  - Dysgeusia [Unknown]
  - Anxiety [Unknown]
  - Fatigue [Unknown]
  - Pulmonary thrombosis [Unknown]
  - Abdominal pain upper [Unknown]
  - Headache [Unknown]
  - Decreased appetite [Unknown]
  - Constipation [Unknown]
